FAERS Safety Report 12595520 (Version 2)
Quarter: 2016Q4

REPORT INFORMATION
  Report Type: Spontaneous
  Country: US (occurrence: US)
  Receive Date: 20160726
  Receipt Date: 20161024
  Transmission Date: 20170207
  Serious: No
  Sender: FDA-Public Use
  Company Number: PHEH2016US018399

PATIENT
  Sex: Male

DRUGS (2)
  1. TAFINLAR [Suspect]
     Active Substance: DABRAFENIB MESYLATE
     Indication: NEOPLASM MALIGNANT
     Dosage: 150 MG, BID
     Route: 048
     Dates: start: 20160613
  2. MEKINIST [Suspect]
     Active Substance: TRAMETINIB DIMETHYL SULFOXIDE
     Indication: NEOPLASM MALIGNANT
     Dosage: 2 MG, QD
     Route: 048
     Dates: start: 20160613

REACTIONS (3)
  - Oedema peripheral [Unknown]
  - Pyrexia [Unknown]
  - Peripheral swelling [Unknown]
